FAERS Safety Report 5857217-9 (Version None)
Quarter: 2008Q3

REPORT INFORMATION
  Report Type: 
  Country: None (occurrence: None)
  Receive Date: 20080821
  Receipt Date: 20080812
  Transmission Date: 20090109
  Serious: Yes (Other)
  Sender: FDA-Public Use
  Company Number: 2008AP002017

PATIENT
  Age: 55 Year
  Sex: Male

DRUGS (2)
  1. PAROXETINE HCL [Suspect]
     Dosage: 20 MG; QD
     Dates: start: 20010517, end: 20021201
  2. PAROXETINE HCL [Suspect]
     Dosage: 20 MG; QD
     Dates: start: 20010517, end: 20021201

REACTIONS (55)
  - AGITATION [None]
  - AGORAPHOBIA [None]
  - ALCOHOL USE [None]
  - BALANCE DISORDER [None]
  - BIPOLAR DISORDER [None]
  - CONDITION AGGRAVATED [None]
  - CONFUSIONAL STATE [None]
  - CRYING [None]
  - DEPERSONALISATION [None]
  - DEPRESSION [None]
  - DIABETIC AUTONOMIC NEUROPATHY [None]
  - DIARRHOEA [None]
  - DISORIENTATION [None]
  - DISTURBANCE IN ATTENTION [None]
  - DIZZINESS [None]
  - DRUG WITHDRAWAL SYNDROME [None]
  - DYSTHYMIC DISORDER [None]
  - EUPHORIC MOOD [None]
  - FEAR [None]
  - FEELING ABNORMAL [None]
  - FEELING OF DESPAIR [None]
  - GASTROOESOPHAGEAL REFLUX DISEASE [None]
  - GENERALISED ANXIETY DISORDER [None]
  - HOMICIDAL IDEATION [None]
  - HYPERHIDROSIS [None]
  - HYPERPHAGIA [None]
  - MEMORY IMPAIRMENT [None]
  - MENINGIOMA [None]
  - MOOD SWINGS [None]
  - MYALGIA [None]
  - MYOCLONUS [None]
  - NAUSEA [None]
  - ORAL DYSAESTHESIA [None]
  - OVERDOSE [None]
  - PANIC REACTION [None]
  - PARAESTHESIA [None]
  - PARANOIA [None]
  - PSYCHOMOTOR HYPERACTIVITY [None]
  - SECONDARY HYPOGONADISM [None]
  - SELF INJURIOUS BEHAVIOUR [None]
  - SELF-INJURIOUS IDEATION [None]
  - SKIN LACERATION [None]
  - SLEEP DISORDER [None]
  - SOMATOFORM DISORDER [None]
  - SPEECH DISORDER [None]
  - SPINAL OSTEOARTHRITIS [None]
  - SUICIDAL IDEATION [None]
  - TEARFULNESS [None]
  - THINKING ABNORMAL [None]
  - TINNITUS [None]
  - TONGUE BITING [None]
  - TREATMENT NONCOMPLIANCE [None]
  - VERTIGO [None]
  - VESTIBULAR DISORDER [None]
  - WEIGHT DECREASED [None]
